FAERS Safety Report 9119659 (Version 3)
Quarter: 2013Q2

REPORT INFORMATION
  Report Type: Spontaneous
  Country: US (occurrence: US)
  Receive Date: 20130226
  Receipt Date: 20130405
  Transmission Date: 20140414
  Serious: No
  Sender: FDA-Public Use
  Company Number: US-009507513-1302USA008900

PATIENT
  Age: 72 Year
  Sex: Male

DRUGS (1)
  1. AZASITE [Suspect]
     Indication: INFECTION
     Dosage: APPLY 1 DROP WITH A FINGER TO EACH EYELID AT BEDTIME
     Route: 047
     Dates: start: 20130214

REACTIONS (3)
  - Medication error [Unknown]
  - Product packaging quantity issue [Unknown]
  - No adverse event [Unknown]
